FAERS Safety Report 12376006 (Version 1)
Quarter: 2016Q2

REPORT INFORMATION
  Report Type: Other
  Country: TW (occurrence: TW)
  Receive Date: 20160517
  Receipt Date: 20160517
  Transmission Date: 20160815
  Serious: Yes (Hospitalization, Other)
  Sender: FDA-Public Use
  Company Number: TW-MDT-ADR-2016-00878

PATIENT
  Age: 81 Year
  Sex: Female

DRUGS (6)
  1. AMLODIPINE [Concomitant]
     Active Substance: AMLODIPINE BESYLATE
  2. ACETAMINOPHEN. [Suspect]
     Active Substance: ACETAMINOPHEN
  3. BACLOFEN. [Suspect]
     Active Substance: BACLOFEN
     Route: 048
  4. ACARBOSE. [Concomitant]
     Active Substance: ACARBOSE
  5. VALSARTAN. [Concomitant]
     Active Substance: VALSARTAN
  6. FUROSEMIDE. [Concomitant]
     Active Substance: FUROSEMIDE

REACTIONS (8)
  - Hypotonia [Recovered/Resolved]
  - Coma [Recovered/Resolved]
  - Neurotoxicity [Recovered/Resolved]
  - Altered state of consciousness [Recovered/Resolved]
  - Toxic encephalopathy [Recovered/Resolved]
  - Hyporeflexia [Recovered/Resolved]
  - Mental status changes [Recovered/Resolved]
  - Drug level increased [Recovered/Resolved]
